FAERS Safety Report 4735825-6 (Version None)
Quarter: 2005Q3

REPORT INFORMATION
  Report Type: 
  Country: None (occurrence: None)
  Receive Date: 20050721
  Receipt Date: 20050526
  Transmission Date: 20060218
  Serious: No
  Sender: FDA-Public Use
  Company Number: 2005SP001045

PATIENT
  Age: 36 Year
  Sex: Male

DRUGS (2)
  1. LUNESTA [Suspect]
     Indication: CIRCADIAN RHYTHM SLEEP DISORDER
     Dosage: 3 MG;HS;ORAL
     Route: 048
     Dates: start: 20050516
  2. AMBIEN [Concomitant]

REACTIONS (1)
  - DYSGEUSIA [None]
